FAERS Safety Report 16959806 (Version 1)
Quarter: 2019Q4

REPORT INFORMATION
  Report Type: Spontaneous
  Country: US (occurrence: US)
  Receive Date: 20191025
  Receipt Date: 20191025
  Transmission Date: 20200122
  Serious: Yes (Other)
  Sender: FDA-Public Use
  Company Number: US-ACS-001517

PATIENT
  Sex: Male

DRUGS (1)
  1. CEFAZOLIN FOR INJECTION 1 G. [Suspect]
     Active Substance: CEFAZOLIN
     Indication: BACTERAEMIA
     Route: 042

REACTIONS (1)
  - Renal tubular necrosis [Not Recovered/Not Resolved]

NARRATIVE: CASE EVENT DATE: 20190922
